FAERS Safety Report 21621170 (Version 1)
Quarter: 2022Q4

REPORT INFORMATION
  Report Type: Report from Study
  Country: US (occurrence: US)
  Receive Date: 20221121
  Receipt Date: 20221121
  Transmission Date: 20230112
  Serious: No
  Sender: FDA-Public Use
  Company Number: US-ABBVIE-4161210

PATIENT

DRUGS (1)
  1. HUMIRA [Suspect]
     Active Substance: ADALIMUMAB
     Indication: Psoriasis
     Dosage: CITRATE FREE?40 MG
     Route: 058

REACTIONS (4)
  - Feeling hot [Unknown]
  - Erythema [Unknown]
  - Swelling [Unknown]
  - Rash [Unknown]
